FAERS Safety Report 5283453-9 (Version None)
Quarter: 2007Q2

REPORT INFORMATION
  Report Type: 
  Country: None (occurrence: None)
  Receive Date: 20070402
  Receipt Date: 20070322
  Transmission Date: 20071010
  Serious: Yes (Life-Threatening, Hospitalization, Disabling, Other)
  Sender: FDA-Public Use
  Company Number: US-MERCK-0703USA02344

PATIENT
  Age: 67 Year
  Sex: Male

DRUGS (3)
  1. VYTORIN [Suspect]
     Indication: BLOOD CHOLESTEROL
     Route: 048
     Dates: start: 20041101, end: 20060301
  2. VYTORIN [Suspect]
     Route: 048
     Dates: start: 20060301
  3. TETANUS TOXOID [Suspect]
     Route: 051
     Dates: start: 20060801

REACTIONS (8)
  - CRANIAL NERVE PARALYSIS [None]
  - INAPPROPRIATE SCHEDULE OF DRUG ADMINISTRATION [None]
  - LYMPHADENOPATHY [None]
  - MUSCULOSKELETAL STIFFNESS [None]
  - MYOCARDIAL INFARCTION [None]
  - PHARYNGOLARYNGEAL PAIN [None]
  - TRACHEOSTOMY INFECTION [None]
  - TRISMUS [None]
